FAERS Safety Report 21305680 (Version 1)
Quarter: 2022Q3

REPORT INFORMATION
  Report Type: Spontaneous
  Country: CN (occurrence: CN)
  Receive Date: 20220908
  Receipt Date: 20220908
  Transmission Date: 20221026
  Serious: Yes (Hospitalization, Other)
  Sender: FDA-Public Use
  Company Number: None

PATIENT
  Age: 48 Year
  Sex: Male
  Weight: 79 kg

DRUGS (10)
  1. CYCLOPHOSPHAMIDE [Suspect]
     Active Substance: CYCLOPHOSPHAMIDE
     Indication: Peripheral T-cell lymphoma unspecified stage III
     Dosage: DOSAGE FORM- INJECTION, 1.4 G, ONCE (DILUTED WITH 0.9% SODIUM CHLORIDE 500 ML)
     Route: 041
     Dates: start: 20220816, end: 20220816
  2. DEXTROSE MONOHYDRATE [Suspect]
     Active Substance: DEXTROSE MONOHYDRATE
     Indication: Medication dilution
     Dosage: DOSAGE FORM- INJECTION, 250 ML, QD (DILUTED WITH PIRARUBICIN 90 MG)
     Route: 041
     Dates: start: 20220816, end: 20220816
  3. SODIUM CHLORIDE [Suspect]
     Active Substance: SODIUM CHLORIDE
     Indication: Medication dilution
     Dosage: DOSAGE FORM- INJECTION, 500 ML, ONCE (DILUTED WITH CYCLOPHOSPHAMIDE 1.4 G)
     Route: 041
     Dates: start: 20220816, end: 20220816
  4. SODIUM CHLORIDE [Suspect]
     Active Substance: SODIUM CHLORIDE
     Dosage: DOSAGE FORM- INJECTION, 100 ML, ONCE (DILUTED WITH VINCRISTINE 2 MG)
     Route: 041
     Dates: start: 20220816, end: 20220816
  5. SODIUM CHLORIDE [Suspect]
     Active Substance: SODIUM CHLORIDE
     Dosage: DOSAGE FORM- INJECTION, 500 ML, QD (DILUTED WITH ETOPOSIDE 0.1 G)
     Route: 041
     Dates: start: 20220816, end: 20220818
  6. SODIUM CHLORIDE [Suspect]
     Active Substance: SODIUM CHLORIDE
     Dosage: DOSAGE FORM- INJECTION, 500 ML, QD (DILUTED WITH ETOPOSIDE 0.09 G)
     Route: 041
     Dates: start: 20220816, end: 20220818
  7. VINCRISTINE SULFATE [Suspect]
     Active Substance: VINCRISTINE SULFATE
     Indication: Peripheral T-cell lymphoma unspecified stage III
     Dosage: 2 MG, ONCE (DILUTED WITH 0.9% SODIUM CHLORIDE 100 ML)
     Route: 041
     Dates: start: 20220816, end: 20220816
  8. PIRARUBICIN HYDROCHLORIDE [Suspect]
     Active Substance: PIRARUBICIN HYDROCHLORIDE
     Indication: Peripheral T-cell lymphoma unspecified stage III
     Dosage: 90 MG, QD (DILUTED WITH 5% GLUCOSE 250 ML)
     Route: 041
     Dates: start: 20220816, end: 20220816
  9. ETOPOSIDE [Suspect]
     Active Substance: ETOPOSIDE
     Indication: Peripheral T-cell lymphoma unspecified stage III
     Dosage: 0.1 G, QD (DILUTED WITH 0.9% SODIUM CHLORIDE 500 ML)
     Route: 041
     Dates: start: 20220816, end: 20220818
  10. ETOPOSIDE [Suspect]
     Active Substance: ETOPOSIDE
     Dosage: 0.09 G, QD (DILUTED WITH 0.9% SODIUM CHLORIDE 500 ML)
     Route: 041
     Dates: start: 20220816, end: 20220818

REACTIONS (2)
  - White blood cell count decreased [Unknown]
  - Neutrophil count decreased [Unknown]

NARRATIVE: CASE EVENT DATE: 20220819
